FAERS Safety Report 9716718 (Version 1)
Quarter: 2013Q4

REPORT INFORMATION
  Report Type: Spontaneous
  Country: US (occurrence: US)
  Receive Date: 20131127
  Receipt Date: 20131127
  Transmission Date: 20140711
  Serious: No
  Sender: FDA-Public Use
  Company Number: US-ENDO PHARMACEUTICALS INC.-HYDR20120005

PATIENT
  Sex: Female

DRUGS (2)
  1. HYDROCORTISONE TABLETS 5MG [Suspect]
     Indication: ADDISON^S DISEASE
     Route: 048
     Dates: start: 201202
  2. DEXAMETHASONE [Concomitant]
     Indication: ADDISON^S DISEASE

REACTIONS (6)
  - Asthenia [Not Recovered/Not Resolved]
  - Nausea [Not Recovered/Not Resolved]
  - Dizziness [Not Recovered/Not Resolved]
  - Tremor [Not Recovered/Not Resolved]
  - Intentional drug misuse [Not Recovered/Not Resolved]
  - Drug effect decreased [Not Recovered/Not Resolved]
